FAERS Safety Report 7489979-1 (Version None)
Quarter: 2011Q2

REPORT INFORMATION
  Report Type: 
  Country: None (occurrence: None)
  Receive Date: 20110519
  Receipt Date: 20110504
  Transmission Date: 20111010
  Serious: Yes (Other)
  Sender: FDA-Public Use
  Company Number: US-JNJFOC-20110504151

PATIENT
  Sex: Male
  Weight: 96.16 kg

DRUGS (16)
  1. FENTANYL-100 [Suspect]
     Route: 062
     Dates: end: 20110101
  2. FENTANYL-100 [Suspect]
     Route: 062
     Dates: end: 20110101
  3. FENTANYL-100 [Suspect]
     Indication: ARTHRALGIA
     Route: 062
  4. FENTANYL-100 [Suspect]
     Indication: ARTHRALGIA
     Route: 062
  5. NORCO [Concomitant]
     Indication: PAIN
     Route: 048
  6. FENTANYL-100 [Suspect]
     Indication: INTERVERTEBRAL DISC PROTRUSION
     Route: 062
  7. FENTANYL [Suspect]
     Indication: INTERVERTEBRAL DISC PROTRUSION
     Route: 062
     Dates: start: 20040101
  8. CARDIZEM [Concomitant]
     Indication: HYPERTENSION
     Route: 048
  9. FENTANYL-100 [Suspect]
     Indication: BACK PAIN
     Route: 062
  10. FENTANYL-100 [Suspect]
     Indication: INTERVERTEBRAL DISC PROTRUSION
     Route: 062
  11. LYRICA [Concomitant]
     Indication: PAIN
     Route: 048
  12. FENTANYL [Suspect]
     Indication: ARTHRALGIA
     Route: 062
     Dates: start: 20040101
  13. FENTANYL [Suspect]
     Indication: BACK PAIN
     Route: 062
     Dates: start: 20040101
  14. FENTANYL-100 [Suspect]
     Route: 062
     Dates: end: 20110101
  15. FENTANYL-100 [Suspect]
     Indication: BACK PAIN
     Route: 062
  16. OXYCODONE HCL AND ACETAMINOPHEN [Concomitant]
     Indication: PAIN
     Dosage: 5-325 MG EVERY 6 HOURS
     Route: 048

REACTIONS (6)
  - HYPERHIDROSIS [None]
  - HYPERTENSION [None]
  - PAIN [None]
  - ABNORMAL DREAMS [None]
  - PRODUCT QUALITY ISSUE [None]
  - WRONG TECHNIQUE IN DRUG USAGE PROCESS [None]
